FAERS Safety Report 11229591 (Version 1)
Quarter: 2015Q2

REPORT INFORMATION
  Report Type: Spontaneous
  Country: RU (occurrence: RU)
  Receive Date: 20150630
  Receipt Date: 20150630
  Transmission Date: 20150821
  Serious: Yes (Other)
  Sender: FDA-Public Use
  Company Number: RU-BRISTOL-MYERS SQUIBB COMPANY-BMS-2015-041461

PATIENT
  Age: 30 Year
  Sex: Male

DRUGS (2)
  1. STOCRIN [Suspect]
     Active Substance: EFAVIRENZ
     Indication: HIV INFECTION
     Route: 048
  2. STOCRIN [Interacting]
     Active Substance: EFAVIRENZ
     Indication: HEPATITIS C

REACTIONS (2)
  - Drug interaction [Unknown]
  - Depression [Unknown]
